FAERS Safety Report 6471640-3 (Version None)
Quarter: 2009Q4

REPORT INFORMATION
  Report Type: 
  Country: None (occurrence: None)
  Receive Date: 20091203
  Receipt Date: 20080418
  Transmission Date: 20100525
  Serious: Yes (Life-Threatening, Hospitalization, Disabling, Other)
  Sender: FDA-Public Use
  Company Number: US-ELI_LILLY_AND_COMPANY-US200804000224

PATIENT
  Sex: Male
  Weight: 68.027 kg

DRUGS (1)
  1. STRATTERA [Suspect]
     Dosage: 40 MG, 2/D
     Dates: start: 20040901, end: 20050101

REACTIONS (5)
  - BRAIN INJURY [None]
  - CARDIAC ARREST [None]
  - CARDIAC DISORDER [None]
  - CONDUCTION DISORDER [None]
  - HEART RATE INCREASED [None]
